FAERS Safety Report 6208127-9 (Version None)
Quarter: 2009Q2

REPORT INFORMATION
  Report Type: 
  Country: None (occurrence: None)
  Receive Date: 20090529
  Receipt Date: 20090519
  Transmission Date: 20091009
  Serious: Yes (Hospitalization, Other)
  Sender: FDA-Public Use
  Company Number: JP-ROCHE-619887

PATIENT
  Sex: Male
  Weight: 54 kg

DRUGS (2)
  1. XELODA [Suspect]
     Indication: COLON CANCER
     Dosage: DRUG: XELODA 300
     Route: 048
     Dates: start: 20090205, end: 20090211
  2. PYRIDOXAL PHOSPHATE [Concomitant]
     Route: 048
     Dates: start: 20090205, end: 20090211

REACTIONS (5)
  - LIP EROSION [None]
  - PALMAR-PLANTAR ERYTHRODYSAESTHESIA SYNDROME [None]
  - PHARYNGITIS [None]
  - STOMATITIS [None]
  - URETHRAL PAIN [None]
